FAERS Safety Report 8812196 (Version 2)
Quarter: 2013Q1

REPORT INFORMATION
  Report Type: Report from Study
  Country: US (occurrence: US)
  Receive Date: 20120927
  Receipt Date: 20130320
  Transmission Date: 20140127
  Serious: Yes (Hospitalization)
  Sender: FDA-Public Use
  Company Number: US-GILEAD-2012-0061757

PATIENT
  Age: 25 Year
  Sex: Male

DRUGS (3)
  1. EFAVIRENZ/EMTRICITABINE/TENOFOVIR DISOPROXIL FUMARATE [Suspect]
     Indication: HIV INFECTION
     Dosage: 1 DF, QD
     Route: 048
     Dates: start: 20100803
  2. CHLORHEXIDINE GLUCONATE [Concomitant]
  3. FLUOCINONIDE [Concomitant]

REACTIONS (1)
  - Bipolar I disorder [Recovered/Resolved]
